FAERS Safety Report 25751385 (Version 1)
Quarter: 2025Q3

REPORT INFORMATION
  Report Type: Spontaneous
  Country: US (occurrence: None)
  Receive Date: 20250831
  Receipt Date: 20250831
  Transmission Date: 20251021
  Serious: Yes (Other)
  Sender: FDA-CTU
  Company Number: None

PATIENT
  Age: 79 Year
  Sex: Female
  Weight: 62.1 kg

DRUGS (5)
  1. BRIMONIDINE TARTRATE\TIMOLOL MALEATE [Suspect]
     Active Substance: BRIMONIDINE TARTRATE\TIMOLOL MALEATE
     Indication: Ocular hypertension
     Dosage: FREQUENCY : DAILY;?
     Route: 047
     Dates: start: 20120801, end: 20250809
  2. BRIMONIDINE TARTRATE\TIMOLOL MALEATE [Suspect]
     Active Substance: BRIMONIDINE TARTRATE\TIMOLOL MALEATE
     Indication: Glaucoma
  3. RALOXIFENE [Concomitant]
     Active Substance: RALOXIFENE
     Dates: start: 20150801
  4. CELEBREX [Concomitant]
     Active Substance: CELECOXIB
     Dates: start: 20150801
  5. LIPITOR [Concomitant]
     Active Substance: ATORVASTATIN CALCIUM
     Dates: start: 20250201

REACTIONS (5)
  - Hypotension [None]
  - Bradycardia [None]
  - Fatigue [None]
  - Presyncope [None]
  - Vomiting [None]

NARRATIVE: CASE EVENT DATE: 20250802
